FAERS Safety Report 21762162 (Version 2)
Quarter: 2022Q4

REPORT INFORMATION
  Report Type: Report from Study
  Country: PE (occurrence: PE)
  Receive Date: 20221221
  Receipt Date: 20221228
  Transmission Date: 20230113
  Serious: Yes (Other)
  Sender: FDA-Public Use
  Company Number: PE-AMGEN-PERSL2022211375

PATIENT
  Age: 78 Year
  Sex: Female

DRUGS (2)
  1. PROLIA [Suspect]
     Active Substance: DENOSUMAB
     Indication: Osteoporosis
     Dosage: 60 MILLIGRAM, Q6MO
     Route: 058
     Dates: start: 20200910
  2. MAXUCAL [Concomitant]
     Dosage: UNK

REACTIONS (11)
  - Angioedema [Recovering/Resolving]
  - Synovial cyst [Unknown]
  - Periorbital oedema [Not Recovered/Not Resolved]
  - Dizziness [Unknown]
  - Urticaria [Recovering/Resolving]
  - Myalgia [Not Recovered/Not Resolved]
  - Paraesthesia [Recovering/Resolving]
  - Bone pain [Not Recovered/Not Resolved]
  - Pain in extremity [Recovering/Resolving]
  - Arthralgia [Unknown]
  - Insomnia [Not Recovered/Not Resolved]

NARRATIVE: CASE EVENT DATE: 20221129
